FAERS Safety Report 21739936 (Version 4)
Quarter: 2025Q1

REPORT INFORMATION
  Report Type: Spontaneous
  Country: US (occurrence: US)
  Receive Date: 20221216
  Receipt Date: 20250311
  Transmission Date: 20250409
  Serious: Yes (Death, Other)
  Sender: NOVARTIS
  Company Number: US-002147023-NVSC2021US315427

PATIENT
  Age: 68 Year
  Sex: Male

DRUGS (3)
  1. KYMRIAH [Suspect]
     Active Substance: TISAGENLECLEUCEL
     Indication: Diffuse large B-cell lymphoma
     Route: 041
     Dates: start: 20191209, end: 20191209
  2. CYCLOPHOSPHAMIDE [Concomitant]
     Active Substance: CYCLOPHOSPHAMIDE
     Indication: Chemotherapy
     Route: 065
  3. FLUDARABINE [Concomitant]
     Active Substance: FLUDARABINE PHOSPHATE
     Indication: Chemotherapy
     Route: 065

REACTIONS (9)
  - T-cell lymphoma [Fatal]
  - Metastases to lymph nodes [Unknown]
  - Second primary malignancy [Not Recovered/Not Resolved]
  - Hypogammaglobulinaemia [Not Recovered/Not Resolved]
  - Lymphocyte count decreased [Unknown]
  - Diffuse large B-cell lymphoma recurrent [Unknown]
  - Rhinovirus infection [Unknown]
  - Epstein-Barr virus test positive [Unknown]
  - Influenza [Unknown]

NARRATIVE: CASE EVENT DATE: 20200901
